FAERS Safety Report 9461964 (Version 4)
Quarter: 2013Q4

REPORT INFORMATION
  Report Type: Spontaneous
  Country: US (occurrence: US)
  Receive Date: 20130816
  Receipt Date: 20131105
  Transmission Date: 20140711
  Serious: Yes (Death, Hospitalization)
  Sender: FDA-Public Use
  Company Number: US-PFIZER INC-2013234150

PATIENT
  Age: 76 Year
  Sex: Male
  Weight: 77.1 kg

DRUGS (2)
  1. VFEND [Suspect]
     Indication: FUNGAL INFECTION
     Dosage: 200 MG, 2X/DAY
     Dates: start: 20130628
  2. VFEND [Suspect]
     Indication: PNEUMONIA VIRAL

REACTIONS (9)
  - General physical health deterioration [Fatal]
  - Pneumonia viral [Unknown]
  - Fall [Unknown]
  - Testicular disorder [Not Recovered/Not Resolved]
  - Weight increased [Not Recovered/Not Resolved]
  - Renal disorder [Not Recovered/Not Resolved]
  - Fluid retention [Not Recovered/Not Resolved]
  - Swelling [Not Recovered/Not Resolved]
  - Back pain [Not Recovered/Not Resolved]
